FAERS Safety Report 8969636 (Version 2)
Quarter: 2013Q2

REPORT INFORMATION
  Report Type: Spontaneous
  Country: DE (occurrence: DE)
  Receive Date: 20121218
  Receipt Date: 20130524
  Transmission Date: 20140414
  Serious: Yes (Other)
  Sender: FDA-Public Use
  Company Number: DE-AMGEN-DEUSP2012023923

PATIENT
  Age: 62 Year
  Sex: Female
  Weight: 68 kg

DRUGS (10)
  1. ENBREL [Suspect]
     Indication: PSORIATIC ARTHROPATHY
     Dosage: 50 MG, WEEKLY
     Route: 058
     Dates: start: 200910, end: 2013
  2. ARAVA [Concomitant]
     Indication: PSORIATIC ARTHROPATHY
     Dosage: 10 MG, 1X/DAY
     Route: 048
     Dates: start: 200907
  3. ARCOXIA [Concomitant]
     Dosage: UNK
  4. L-THYROXIN [Concomitant]
     Dosage: UNK
  5. AMITRIPTYLINE [Concomitant]
     Dosage: UNK
  6. PANTOPRAZOL [Concomitant]
     Dosage: UNK
  7. OLMETEC [Concomitant]
     Dosage: UNK
  8. BISOPROLOL [Concomitant]
     Dosage: UNK
  9. LUIVAC [Concomitant]
     Dosage: UNK
  10. CORTISONE [Concomitant]
     Dosage: UNK

REACTIONS (7)
  - Pain in jaw [Unknown]
  - Toothache [Unknown]
  - Gingival disorder [Unknown]
  - Tooth disorder [Unknown]
  - Bone pain [Unknown]
  - Respiratory tract infection [Unknown]
  - Tooth abscess [Recovered/Resolved with Sequelae]
